FAERS Safety Report 16498645 (Version 1)
Quarter: 2019Q2

REPORT INFORMATION
  Report Type: Spontaneous
  Country: US (occurrence: US)
  Receive Date: 20190629
  Receipt Date: 20190629
  Transmission Date: 20190711
  Serious: Yes (Hospitalization)
  Sender: FDA-Public Use
  Company Number: US-TEVA-2019-US-1068890

PATIENT
  Age: 55 Year
  Sex: Female
  Weight: 100.4 kg

DRUGS (10)
  1. NORTRIPTYLINE [Suspect]
     Active Substance: NORTRIPTYLINE
     Route: 065
  2. INOTUZUMAB OZOGAMICIN [Suspect]
     Active Substance: INOTUZUMAB OZOGAMICIN
     Dosage: FORM STRENGTH: 0.5 MG/M2, ON DAY 8 AND DAY 15.
     Route: 042
     Dates: end: 20190329
  3. CYCLOPHOSPHAMIDE. [Suspect]
     Active Substance: CYCLOPHOSPHAMIDE
     Indication: PRECURSOR B-LYMPHOBLASTIC LYMPHOMA
     Dosage: FOR STRENGTH: 750 MG/M2, ON DAY 1
     Route: 042
     Dates: start: 20190222, end: 20190322
  4. PREDNISONE. [Suspect]
     Active Substance: PREDNISONE
     Indication: PRECURSOR B-LYMPHOBLASTIC LYMPHOMA
     Dosage: 100 MG, ON DAYS 1-5
     Route: 048
     Dates: start: 20190222, end: 20190326
  5. METHOTREXATE. [Suspect]
     Active Substance: METHOTREXATE
     Route: 042
  6. CEFEPIME HCL [Suspect]
     Active Substance: CEFEPIME HYDROCHLORIDE
     Route: 065
  7. TRAMADOL. [Suspect]
     Active Substance: TRAMADOL
     Route: 065
  8. FENTANYL CITRATE. [Suspect]
     Active Substance: FENTANYL CITRATE
     Route: 065
  9. INOTUZUMAB OZOGAMICIN [Suspect]
     Active Substance: INOTUZUMAB OZOGAMICIN
     Indication: PRECURSOR B-LYMPHOBLASTIC LYMPHOMA
     Dosage: FORM STRENGTH: 0.8 MG/M2, ON DAY 1
     Route: 042
     Dates: start: 20190222
  10. VINCRISTINE SULFATE. [Suspect]
     Active Substance: VINCRISTINE SULFATE
     Indication: PRECURSOR B-LYMPHOBLASTIC LYMPHOMA
     Dosage: 1.4 MG/M2, ON DAY 1
     Route: 042
     Dates: start: 20190222, end: 20190322

REACTIONS (2)
  - Encephalopathy [Recovered/Resolved]
  - Fatigue [Not Recovered/Not Resolved]

NARRATIVE: CASE EVENT DATE: 20190405
